FAERS Safety Report 5225737-6 (Version None)
Quarter: 2007Q1

REPORT INFORMATION
  Report Type: 
  Country: None (occurrence: None)
  Receive Date: 20070131
  Receipt Date: 20070131
  Transmission Date: 20070707
  Serious: Yes (Hospitalization)
  Sender: FDA-Public Use
  Company Number: None

PATIENT
  Age: 64 Year
  Sex: Female
  Weight: 56.1 kg

DRUGS (2)
  1. CETUXIMAB [Suspect]
     Indication: BREAST CANCER
     Dosage: 405 MG IV WEEKLY
     Route: 042
     Dates: start: 20061120, end: 20070122
  2. CARBOPLATIN [Suspect]
     Indication: BREAST CANCER
     Dosage: 217 MG IV WEEKLY
     Route: 042
     Dates: start: 20070116, end: 20070122

REACTIONS (10)
  - ABDOMINAL DISTENSION [None]
  - ABDOMINAL PAIN [None]
  - ANOREXIA [None]
  - ASTHENIA [None]
  - FATIGUE [None]
  - HAEMATOCRIT DECREASED [None]
  - HAEMORRHAGE [None]
  - MELAENA [None]
  - NAUSEA [None]
  - PAIN [None]
